FAERS Safety Report 9308479 (Version 2)
Quarter: 2013Q2

REPORT INFORMATION
  Report Type: Spontaneous
  Country: CA (occurrence: CA)
  Receive Date: 20130524
  Receipt Date: 20130606
  Transmission Date: 20140414
  Serious: Yes (Death, Hospitalization, Other)
  Sender: FDA-Public Use
  Company Number: CA-AMGEN-CANSP2013035876

PATIENT
  Age: 53 Year
  Sex: Female
  Weight: 97.2 kg

DRUGS (3)
  1. XGEVA [Suspect]
     Indication: BREAST CANCER
     Dosage: 120 MG, Q4WK
     Route: 058
     Dates: start: 20121129, end: 20130221
  2. CAPECITABINE [Concomitant]
     Indication: BREAST CANCER METASTATIC
     Dosage: 1300 MG, BID
     Route: 048
     Dates: start: 20130201, end: 20130313
  3. LAPATINIB [Concomitant]
     Indication: BREAST CANCER METASTATIC
     Dosage: 1250 MG, QD
     Route: 048
     Dates: start: 20130201, end: 20130419

REACTIONS (7)
  - Metastases to liver [Unknown]
  - Hepatic failure [Fatal]
  - Hepatic cyst [Unknown]
  - Pyelocaliectasis [Unknown]
  - Aortic calcification [Unknown]
  - Lymphadenopathy [Unknown]
  - Diverticulum intestinal [Unknown]
